FAERS Safety Report 15562132 (Version 11)
Quarter: 2019Q3

REPORT INFORMATION
  Report Type: Report from Study
  Country: US (occurrence: US)
  Receive Date: 20181029
  Receipt Date: 20190926
  Transmission Date: 20191004
  Serious: Yes (Other)
  Sender: FDA-Public Use
  Company Number: US-TESAROUBC-US-2018TSO04643

PATIENT
  Age: 60 Year
  Sex: Female
  Weight: 103 kg

DRUGS (3)
  1. NIRAPARIB [Suspect]
     Active Substance: NIRAPARIB
     Indication: OVARIAN CANCER
     Dosage: 200 MG, QD  QPM WITH OR WITHOUT FOOD
     Route: 048
     Dates: start: 20180913
  2. AVASTIN [Suspect]
     Active Substance: BEVACIZUMAB
     Indication: PRODUCT USED FOR UNKNOWN INDICATION
     Dosage: UNK, EVERY 3 WEEKS
  3. NIRAPARIB [Suspect]
     Active Substance: NIRAPARIB
     Dosage: 200 MG, QD  QPM WITH OR WITHOUT FOOD
     Route: 048
     Dates: start: 20180913

REACTIONS (35)
  - White blood cell count decreased [Not Recovered/Not Resolved]
  - Chest pain [Unknown]
  - White blood cell count increased [Unknown]
  - Constipation [Not Recovered/Not Resolved]
  - Blood pressure increased [Not Recovered/Not Resolved]
  - Rash pruritic [Not Recovered/Not Resolved]
  - Ear discomfort [Unknown]
  - Oropharyngeal discomfort [Unknown]
  - Carbohydrate antigen 125 increased [Recovered/Resolved]
  - Blood alkaline phosphatase increased [Unknown]
  - Ephelides [Not Recovered/Not Resolved]
  - Blood glucose increased [Not Recovered/Not Resolved]
  - Red cell distribution width increased [Not Recovered/Not Resolved]
  - Monocyte count increased [Unknown]
  - Back pain [Not Recovered/Not Resolved]
  - Headache [Not Recovered/Not Resolved]
  - Heart rate increased [Not Recovered/Not Resolved]
  - Hot flush [Not Recovered/Not Resolved]
  - Blood pressure fluctuation [Not Recovered/Not Resolved]
  - Pulmonary mass [Unknown]
  - Rash [Unknown]
  - Abdominal distension [Not Recovered/Not Resolved]
  - Platelet count increased [Recovered/Resolved]
  - Lymphadenopathy [Unknown]
  - Dizziness [Not Recovered/Not Resolved]
  - Fatigue [Not Recovered/Not Resolved]
  - Nausea [Unknown]
  - Alopecia [Not Recovered/Not Resolved]
  - Pain [Not Recovered/Not Resolved]
  - Gastroenteritis viral [Unknown]
  - Abdominal pain [Not Recovered/Not Resolved]
  - Red blood cell count decreased [Not Recovered/Not Resolved]
  - Oral mucosal blistering [Not Recovered/Not Resolved]
  - Laboratory test abnormal [Unknown]
  - Chest wall tumour [Unknown]

NARRATIVE: CASE EVENT DATE: 2018
